FAERS Safety Report 8483401-4 (Version None)
Quarter: 2012Q3

REPORT INFORMATION
  Report Type: 
  Country: None (occurrence: None)
  Receive Date: 20120702
  Receipt Date: 20120625
  Transmission Date: 20120928
  Serious: Yes (Other)
  Sender: FDA-Public Use
  Company Number: JP-JNJFOC-20120613447

PATIENT
  Sex: Female
  Weight: 48 kg

DRUGS (10)
  1. SIMPONI [Suspect]
     Indication: RHEUMATOID ARTHRITIS
     Route: 058
     Dates: start: 20111121
  2. SIMPONI [Suspect]
     Route: 058
     Dates: start: 20120510
  3. METHOTREXATE [Suspect]
     Indication: RHEUMATOID ARTHRITIS
  4. PREDNISOLONE ACETATE [Suspect]
     Indication: RHEUMATOID ARTHRITIS
     Route: 048
  5. LOXONIN [Concomitant]
     Indication: RHEUMATOID ARTHRITIS
     Route: 048
  6. MUCOSTA [Concomitant]
     Indication: PROPHYLAXIS
     Route: 048
  7. SIMPONI [Suspect]
     Route: 058
     Dates: start: 20111219
  8. SIMPONI [Suspect]
     Route: 058
     Dates: start: 20120116
  9. SIMPONI [Suspect]
     Route: 058
     Dates: start: 20120309
  10. SIMPONI [Suspect]
     Route: 058
     Dates: start: 20120405

REACTIONS (2)
  - PNEUMONIA [None]
  - HEPATIC FUNCTION ABNORMAL [None]
